FAERS Safety Report 6021285-4 (Version None)
Quarter: 2008Q4

REPORT INFORMATION
  Report Type: 
  Country: None (occurrence: None)
  Receive Date: 20081229
  Receipt Date: 20081219
  Transmission Date: 20090506
  Serious: Yes (Hospitalization, Other)
  Sender: FDA-Public Use
  Company Number: BR-ABBOTT-08P-020-0487205-00

PATIENT
  Age: 83 Year
  Sex: Female

DRUGS (11)
  1. NOCTAL [Suspect]
     Indication: SLEEP DISORDER THERAPY
     Route: 048
     Dates: start: 19980101, end: 20081031
  2. NOCTAL [Suspect]
  3. DORMONID [Concomitant]
     Indication: SLEEP DISORDER THERAPY
     Route: 048
  4. CITALOPRAM [Concomitant]
     Indication: DEPRESSION
     Route: 048
  5. PANTOPRAZOLE [Concomitant]
     Indication: GASTRIC DISORDER
     Route: 048
  6. GLIMEPIL [Concomitant]
     Indication: DIABETES MELLITUS
     Route: 048
  7. CARDIZEM [Concomitant]
     Indication: CARDIAC DISORDER
     Route: 048
  8. CAPTOPRIL [Concomitant]
     Indication: CARDIAC DISORDER
     Route: 048
  9. SOMALGIN [Concomitant]
     Indication: ANTICOAGULANT THERAPY
     Route: 048
  10. ARADOIS [Concomitant]
     Indication: BLOOD PRESSURE MANAGEMENT
     Route: 048
  11. GLIFAGE XR [Concomitant]
     Indication: DIABETES MELLITUS
     Route: 048

REACTIONS (3)
  - AGITATION [None]
  - INSOMNIA [None]
  - SURGERY [None]
